FAERS Safety Report 10241491 (Version 2)
Quarter: 2014Q2

REPORT INFORMATION
  Report Type: Spontaneous
  Country: IT (occurrence: IT)
  Receive Date: 20140617
  Receipt Date: 20140617
  Transmission Date: 20141212
  Serious: Yes (Hospitalization)
  Sender: FDA-Public Use
  Company Number: IT-SA-2014SA028903

PATIENT
  Age: 23 Month
  Sex: Male
  Weight: 12 kg

DRUGS (1)
  1. FERLIXIT [Suspect]
     Indication: IRON DEFICIENCY ANAEMIA
     Route: 040
     Dates: start: 20140218, end: 20140218

REACTIONS (7)
  - Sopor [Recovered/Resolved]
  - Off label use [Unknown]
  - Anaphylactic reaction [Recovered/Resolved]
  - Agitation [Recovered/Resolved]
  - Urticaria [Recovered/Resolved]
  - Tachycardia [Recovered/Resolved]
  - Vomiting [Recovered/Resolved]
